FAERS Safety Report 16019079 (Version 1)
Quarter: 2019Q1

REPORT INFORMATION
  Report Type: Spontaneous
  Country: FR (occurrence: FR)
  Receive Date: 20190228
  Receipt Date: 20190228
  Transmission Date: 20190418
  Serious: Yes (Other)
  Sender: FDA-Public Use
  Company Number: FR-TEVA-2019-FR-1016506

PATIENT
  Age: 44 Year
  Sex: Male
  Weight: 67 kg

DRUGS (7)
  1. TRUVADA [Concomitant]
     Active Substance: EMTRICITABINE\TENOFOVIR DISOPROXIL FUMARATE
     Indication: HIV INFECTION
     Route: 048
     Dates: start: 20140409
  2. CLARITHROMYCIN. [Suspect]
     Active Substance: CLARITHROMYCIN
     Route: 048
     Dates: start: 20140318
  3. DEXAMBUTOL [Suspect]
     Active Substance: ETHAMBUTOL HYDROCHLORIDE
     Route: 048
     Dates: start: 20140318
  4. ANSATIPINE [Suspect]
     Active Substance: RIFABUTIN
     Route: 048
     Dates: start: 20140318
  5. WELLVONE [Suspect]
     Active Substance: ATOVAQUONE
     Route: 048
     Dates: start: 20140318
  6. ISENTRESS [Concomitant]
     Active Substance: RALTEGRAVIR POTASSIUM
     Indication: HIV INFECTION
     Route: 048
     Dates: start: 20140409
  7. ATENOLOL. [Concomitant]
     Active Substance: ATENOLOL
     Route: 048
     Dates: start: 201403

REACTIONS (3)
  - Neutropenia [Not Recovered/Not Resolved]
  - Thrombocytopenia [Recovered/Resolved]
  - Leukopenia [Not Recovered/Not Resolved]

NARRATIVE: CASE EVENT DATE: 20140326
